FAERS Safety Report 24057482 (Version 1)
Quarter: 2024Q3

REPORT INFORMATION
  Report Type: Spontaneous
  Country: US (occurrence: US)
  Receive Date: 20240706
  Receipt Date: 20240706
  Transmission Date: 20241017
  Serious: Yes (Other)
  Sender: ABBVIE
  Company Number: US-ABBVIE-5826100

PATIENT
  Age: 60 Year
  Sex: Male
  Weight: 91 kg

DRUGS (2)
  1. ASENAPINE MALEATE [Suspect]
     Active Substance: ASENAPINE MALEATE
     Indication: Bipolar disorder
     Dosage: FORM STRENGTH: 10 MG
     Route: 060
     Dates: start: 202404, end: 202406
  2. LITHIUM [Concomitant]
     Active Substance: LITHIUM
     Indication: Product used for unknown indication

REACTIONS (11)
  - Suicidal behaviour [Recovering/Resolving]
  - Gait disturbance [Unknown]
  - Facial paresis [Recovering/Resolving]
  - Musculoskeletal disorder [Recovering/Resolving]
  - Impaired work ability [Recovering/Resolving]
  - Dysphagia [Recovering/Resolving]
  - Mental impairment [Recovering/Resolving]
  - Insomnia [Recovering/Resolving]
  - Tremor [Recovering/Resolving]
  - Hypertension [Recovering/Resolving]
  - Slow speech [Recovering/Resolving]

NARRATIVE: CASE EVENT DATE: 20240605
